FAERS Safety Report 13910168 (Version 1)
Quarter: 2017Q3

REPORT INFORMATION
  Report Type: Spontaneous
  Country: US (occurrence: None)
  Receive Date: 20170822
  Receipt Date: 20170822
  Transmission Date: 20171127
  Serious: Yes (Other)
  Sender: FDA-Public Use
  Company Number: None

PATIENT
  Age: 71 Year
  Sex: Female
  Weight: 74.84 kg

DRUGS (7)
  1. HAIR, NAIL VITAMINS [Concomitant]
  2. MUPIROCIN OINTMENT [Suspect]
     Active Substance: MUPIROCIN
     Indication: ARTHROPOD BITE
     Dosage: FREQUENCY 2-3 TIMES DAY
     Route: 061
     Dates: start: 20170804, end: 20170804
  3. LUTEIN [Concomitant]
     Active Substance: LUTEIN
  4. MULTI VITAMINS [Concomitant]
     Active Substance: VITAMINS
  5. ZEAXANTHIN EYE VITAMINS [Concomitant]
  6. PROBIOTICS [Concomitant]
     Active Substance: PROBIOTICS NOS
  7. VITAMIN B12 [Concomitant]
     Active Substance: CYANOCOBALAMIN

REACTIONS (9)
  - Application site swelling [None]
  - Skin tightness [None]
  - Pain [None]
  - Application site warmth [None]
  - Application site pain [None]
  - Paraesthesia [None]
  - Application site vesicles [None]
  - Application site hypoaesthesia [None]
  - Application site erythema [None]

NARRATIVE: CASE EVENT DATE: 20170804
